FAERS Safety Report 7333226-8 (Version None)
Quarter: 2011Q1

REPORT INFORMATION
  Report Type: 
  Country: None (occurrence: None)
  Receive Date: 20110224
  Receipt Date: 20110210
  Transmission Date: 20110831
  Serious: Yes (Hospitalization)
  Sender: FDA-Public Use
  Company Number: MPS1-1000448

PATIENT
  Age: 9 Year
  Sex: Male

DRUGS (1)
  1. ALDURAZYME [Suspect]
     Indication: MUCOPOLYSACCHARIDOSIS I
     Dosage: 2.9 MG, 2X/W, INTRAVENOUS
     Route: 042
     Dates: start: 20090701

REACTIONS (3)
  - CANDIDIASIS [None]
  - CULTURE POSITIVE [None]
  - PNEUMONIA [None]
